FAERS Safety Report 6625876-9 (Version None)
Quarter: 2010Q1

REPORT INFORMATION
  Report Type: 
  Country: None (occurrence: None)
  Receive Date: 20100305
  Receipt Date: 20100219
  Transmission Date: 20100710
  Serious: Yes (Death)
  Sender: FDA-Public Use
  Company Number: IPC201002-000048

PATIENT
  Age: 45 Year
  Sex: Female

DRUGS (9)
  1. ATENOLOL [Suspect]
  2. DIAZEPAM [Suspect]
     Dosage: ORAL
     Route: 048
  3. LORATADINE [Suspect]
     Dosage: ORAL
     Route: 048
  4. AMITRIPTYLINE HCL [Suspect]
     Dosage: ORAL
     Route: 048
  5. CITALOPRAM HYDROBROMIDE [Suspect]
     Dosage: ORAL
     Route: 048
  6. LISINOPRIL [Suspect]
     Dosage: ORAL
     Route: 048
  7. FAMOTIDINE [Suspect]
     Dosage: ORAL
     Route: 048
  8. ETHANOL [Suspect]
     Dosage: ORAL
     Route: 048
  9. OXYCODONE HCL [Suspect]
     Dosage: ORAL
     Route: 048

REACTIONS (2)
  - CARDIAC ARREST [None]
  - RESPIRATORY ARREST [None]
